FAERS Safety Report 18279756 (Version 1)
Quarter: 2020Q3

REPORT INFORMATION
  Report Type: Spontaneous
  Country: CN (occurrence: CN)
  Receive Date: 20200917
  Receipt Date: 20200917
  Transmission Date: 20201103
  Serious: Yes (Other)
  Sender: FDA-Public Use
  Company Number: CN-ASTRAZENECA-2020SF14014

PATIENT
  Age: 85 Year
  Sex: Female
  Weight: 55 kg

DRUGS (10)
  1. LANSHA [Concomitant]
     Indication: HYPERTENSION
     Route: 048
  2. ZHUOFU [Concomitant]
     Indication: MENTAL DISORDER
     Route: 048
  3. NEXIUM [Suspect]
     Active Substance: ESOMEPRAZOLE MAGNESIUM
     Indication: HIATUS HERNIA
     Route: 048
  4. PLAVIX [Concomitant]
     Active Substance: CLOPIDOGREL BISULFATE
     Indication: PLATELET AGGREGATION INHIBITION
     Route: 048
  5. ZHUOFU [Concomitant]
     Indication: SENILE DEMENTIA
     Route: 048
  6. METFORMIN [Concomitant]
     Active Substance: METFORMIN HYDROCHLORIDE
     Indication: DIABETES MELLITUS
     Dosage: 0.25
  7. LANSHA [Concomitant]
     Indication: HYPERTENSION
     Dosage: ALTERNATELY
  8. PLAVIX [Concomitant]
     Active Substance: CLOPIDOGREL BISULFATE
     Indication: PLATELET AGGREGATION INHIBITION
     Dosage: ALTERNATELY
  9. NEXIUM [Suspect]
     Active Substance: ESOMEPRAZOLE MAGNESIUM
     Indication: HIATUS HERNIA
     Route: 048
  10. ZHUOFU [Concomitant]
     Indication: DEMENTIA ALZHEIMER^S TYPE
     Route: 048

REACTIONS (3)
  - Eating disorder [Not Recovered/Not Resolved]
  - Hernia perforation [Not Recovered/Not Resolved]
  - Product use issue [Not Recovered/Not Resolved]
